FAERS Safety Report 6616924-0 (Version None)
Quarter: 2010Q1

REPORT INFORMATION
  Report Type: 
  Country: None (occurrence: None)
  Receive Date: 20100301
  Receipt Date: 20100212
  Transmission Date: 20100710
  Serious: Yes (Death)
  Sender: FDA-Public Use
  Company Number: 1000012131

PATIENT
  Age: 50 Year
  Sex: Male

DRUGS (5)
  1. CITALOPRAM HYDROBROMIDE [Suspect]
  2. METHADONE HCL [Suspect]
  3. ALPRAZOLAM [Suspect]
  4. TRAMADOL HCL [Suspect]
  5. ETHANOL [Suspect]

REACTIONS (2)
  - CARDIO-RESPIRATORY ARREST [None]
  - DRUG ABUSE [None]
